FAERS Safety Report 5713045-6 (Version None)
Quarter: 2008Q2

REPORT INFORMATION
  Report Type: 
  Country: None (occurrence: None)
  Receive Date: 20080422
  Receipt Date: 20080325
  Transmission Date: 20081010
  Serious: Yes (Death)
  Sender: FDA-Public Use
  Company Number: PHBS2008IN03826

PATIENT
  Age: 65 Year
  Sex: Male

DRUGS (5)
  1. CLOFAZIMINE [Suspect]
     Indication: LEPROMATOUS LEPROSY
     Dosage: 300 MG, QMO
     Route: 065
  2. CLOFAZIMINE [Suspect]
     Dosage: 100 MG, QOD
  3. ANTIBIOTICS [Concomitant]
  4. DAPSONE [Suspect]
     Indication: LEPROMATOUS LEPROSY
     Dosage: 100 MG/DAY
     Route: 065
  5. RIFAMPICIN [Suspect]
     Indication: LEPROMATOUS LEPROSY

REACTIONS (1)
  - STAPHYLOCOCCAL SEPSIS [None]
